FAERS Safety Report 12931474 (Version 1)
Quarter: 2016Q4

REPORT INFORMATION
  Report Type: Spontaneous
  Country: US (occurrence: US)
  Receive Date: 20161111
  Receipt Date: 20161111
  Transmission Date: 20170207
  Serious: Yes (Other)
  Sender: FDA-Public Use
  Company Number: None

PATIENT
  Age: 39 Year
  Sex: Female
  Weight: 103.5 kg

DRUGS (4)
  1. ZYRTEC [Concomitant]
     Active Substance: CETIRIZINE HYDROCHLORIDE
  2. DAILY MULTIVITAMIN [Concomitant]
     Active Substance: VITAMINS
  3. HCG [Suspect]
     Active Substance: GONADOTROPHIN, CHORIONIC
     Indication: WEIGHT DECREASED
     Dosage: ?          QUANTITY:250 INJECTION(S);OTHER ROUTE:INJECT INTO STOMACH FAT?
     Dates: start: 20160721, end: 20161010
  4. BIOTIN [Concomitant]
     Active Substance: BIOTIN

REACTIONS (5)
  - Confusional state [None]
  - Hypoaesthesia [None]
  - Headache [None]
  - Migraine [None]
  - Dysgeusia [None]

NARRATIVE: CASE EVENT DATE: 20160914
